FAERS Safety Report 5382588-X (Version None)
Quarter: 2007Q3

REPORT INFORMATION
  Report Type: 
  Country: None (occurrence: None)
  Receive Date: 20070710
  Receipt Date: 20070627
  Transmission Date: 20080115
  Serious: Yes (Other)
  Sender: FDA-Public Use
  Company Number: PHBS2007BR10921

PATIENT
  Age: 27 Year
  Sex: Female

DRUGS (2)
  1. CYCLOSPORINE [Suspect]
     Indication: BONE MARROW TRANSPLANT
     Dosage: 2 MG/KG/DAY
     Route: 065
  2. MYCOPHENOLATE MOFETIL [Suspect]
     Indication: BONE MARROW TRANSPLANT
     Dosage: 2 G/DAY
     Route: 065

REACTIONS (11)
  - BLOOD LACTATE DEHYDROGENASE INCREASED [None]
  - BLOOD OSMOLARITY DECREASED [None]
  - BLOOD SODIUM DECREASED [None]
  - EPSTEIN-BARR VIRUS INFECTION [None]
  - INAPPROPRIATE ANTIDIURETIC HORMONE SECRETION [None]
  - LYMPHADENOPATHY [None]
  - LYMPHOPROLIFERATIVE DISORDER [None]
  - NAUSEA [None]
  - PYREXIA [None]
  - URINE SODIUM ABNORMAL [None]
  - VOMITING [None]
